FAERS Safety Report 16455606 (Version 1)
Quarter: 2019Q2

REPORT INFORMATION
  Report Type: Spontaneous
  Country: ES (occurrence: ES)
  Receive Date: 20190620
  Receipt Date: 20190620
  Transmission Date: 20190711
  Serious: Yes (Death, Other)
  Sender: FDA-Public Use
  Company Number: ES-AMGEN-ESPSP2019093829

PATIENT
  Age: 65 Year
  Sex: Female

DRUGS (7)
  1. PANITUMUMAB [Suspect]
     Active Substance: PANITUMUMAB
     Indication: COLORECTAL CANCER METASTATIC
     Dosage: UNK UNK, CYCLICAL
     Route: 065
     Dates: start: 20180719
  2. FOLINIC ACID [Concomitant]
     Active Substance: LEUCOVORIN
     Indication: COLORECTAL CANCER METASTATIC
     Dosage: UNK UNK, CYCLICAL
     Dates: start: 20180131
  3. 5 FU [Concomitant]
     Active Substance: FLUOROURACIL
     Indication: RETROPERITONEAL LYMPHADENOPATHY
  4. PANITUMUMAB [Suspect]
     Active Substance: PANITUMUMAB
     Indication: METASTASES TO LUNG
  5. FOLINIC ACID [Concomitant]
     Active Substance: LEUCOVORIN
     Indication: RETROPERITONEAL LYMPHADENOPATHY
  6. 5 FU [Concomitant]
     Active Substance: FLUOROURACIL
     Indication: COLORECTAL CANCER METASTATIC
     Dosage: UNK UNK, CYCLICAL
     Dates: start: 20180131
  7. PANITUMUMAB [Suspect]
     Active Substance: PANITUMUMAB
     Indication: RETROPERITONEAL LYMPHADENOPATHY

REACTIONS (2)
  - Disease progression [Unknown]
  - Death [Fatal]

NARRATIVE: CASE EVENT DATE: 2018
